FAERS Safety Report 9288000 (Version 1)
Quarter: 2013Q2

REPORT INFORMATION
  Report Type: Spontaneous
  Country: FR (occurrence: FR)
  Receive Date: 20130514
  Receipt Date: 20130514
  Transmission Date: 20140414
  Serious: Yes (Death, Other)
  Sender: FDA-Public Use
  Company Number: FR-ROCHE-1137667

PATIENT
  Age: 27 Year
  Sex: Female
  Weight: 68 kg

DRUGS (4)
  1. XOLAIR [Suspect]
     Indication: PRODUCT USED FOR UNKNOWN INDICATION
     Route: 058
     Dates: start: 20070312
  2. XOLAIR [Suspect]
     Route: 058
     Dates: start: 200808
  3. XOLAIR [Suspect]
     Route: 058
     Dates: start: 200901, end: 201009
  4. SERETIDE [Concomitant]
     Indication: PRODUCT USED FOR UNKNOWN INDICATION
     Dosage: UNTIL 500 MICROGRAM
     Route: 065
     Dates: start: 2006

REACTIONS (3)
  - Small cell carcinoma [Fatal]
  - Blood immunoglobulin E increased [Unknown]
  - Asthma [Unknown]
